FAERS Safety Report 5336717-4 (Version None)
Quarter: 2007Q2

REPORT INFORMATION
  Report Type: 
  Country: None (occurrence: None)
  Receive Date: 20070529
  Receipt Date: 20070514
  Transmission Date: 20071010
  Serious: Yes (Other)
  Sender: FDA-Public Use
  Company Number: JP-ROCHE-490313

PATIENT
  Age: 59 Year
  Sex: Female
  Weight: 55 kg

DRUGS (9)
  1. TAMIFLU [Suspect]
     Route: 048
     Dates: start: 20070323, end: 20070323
  2. HALOPERIDOL [Concomitant]
     Dosage: DRUG NAME REPORTED AS LEMONAMIN.
     Route: 048
     Dates: end: 20070323
  3. ZOTEPINE [Concomitant]
     Dosage: DRUG NAME REPORTED AS LOSIZOPILON.
     Route: 048
     Dates: end: 20070323
  4. BIPERIDEN HYDROCHLORIDE [Concomitant]
     Dosage: DRUG NAME REPORTED AS AKIRIDEN.
     Route: 048
     Dates: end: 20070323
  5. UBIDECARENONE [Concomitant]
     Dosage: DRUG NAME REPORTED AS DEKASOFT.
     Route: 048
     Dates: end: 20070323
  6. SEROQUEL [Concomitant]
     Route: 048
     Dates: end: 20070323
  7. HIBERNA [Concomitant]
     Route: 048
     Dates: end: 20070323
  8. SENNOSIDE [Concomitant]
     Route: 048
     Dates: end: 20070323
  9. FLUNITRAZEPAM [Concomitant]
     Route: 048
     Dates: end: 20070323

REACTIONS (3)
  - CONVULSION [None]
  - DEPRESSED LEVEL OF CONSCIOUSNESS [None]
  - INJURY ASPHYXIATION [None]
